FAERS Safety Report 9057522 (Version 1)
Quarter: 2013Q1

REPORT INFORMATION
  Report Type: Spontaneous
  Country: BR (occurrence: BR)
  Receive Date: 20130204
  Receipt Date: 20130204
  Transmission Date: 20140127
  Serious: Yes (Other)
  Sender: FDA-Public Use
  Company Number: BR-PFIZER INC-2013041904

PATIENT
  Age: 48 Year
  Sex: Male
  Weight: 72 kg

DRUGS (4)
  1. LYRICA [Suspect]
     Dosage: 150 MG, 3X/DAY
     Route: 048
     Dates: start: 20121202
  2. GLIBENCLAMIDE [Concomitant]
     Indication: DIABETES MELLITUS
     Dosage: 4 TABLETS DAILY
     Dates: start: 2009
  3. LOSARTAN POTASSIUM [Concomitant]
     Indication: HYPERTENSION
     Dosage: STRENGTH 50 (UNITS NOT PROVIDED) AT ONE TABLET DAILY
     Dates: start: 2008
  4. METFORMIN [Concomitant]
     Indication: DIABETES MELLITUS
     Dosage: 3 TABLETS, UNSPECIFIED FREQUENCY
     Dates: start: 2010

REACTIONS (2)
  - Intervertebral disc protrusion [Unknown]
  - Off label use [Unknown]
